FAERS Safety Report 5313452-X (Version None)
Quarter: 2007Q2

REPORT INFORMATION
  Report Type: 
  Country: None (occurrence: None)
  Receive Date: 20070424
  Receipt Date: 20070411
  Transmission Date: 20071010
  Serious: Yes (Hospitalization)
  Sender: FDA-Public Use
  Company Number: TAP2006Q01779

PATIENT
  Age: 64 Year
  Sex: Male

DRUGS (7)
  1. LUPRON DEPOT-4 [Suspect]
     Indication: PROSTATE CANCER
     Dosage: 30 MG, 1 IN 4 M, INTRAMUSCULAR
     Route: 030
     Dates: start: 20051221
  2. CRESTOR [Concomitant]
  3. ATENOLOL [Concomitant]
  4. ASPIRIN [Concomitant]
  5. DIOVAN [Concomitant]
  6. NITROGLYCERIN SPRAY (GLYCERYL TRINITRARE) [Concomitant]
  7. TERAZOSIN HCL [Concomitant]

REACTIONS (5)
  - CORONARY ARTERY OCCLUSION [None]
  - CORONARY ARTERY PERFORATION [None]
  - DYSURIA [None]
  - PNEUMONIA [None]
  - POST PROCEDURAL INFECTION [None]
